FAERS Safety Report 8020010-5 (Version None)
Quarter: 2012Q1

REPORT INFORMATION
  Report Type: 
  Country: None (occurrence: None)
  Receive Date: 20120103
  Receipt Date: 20111229
  Transmission Date: 20120608
  Serious: Yes (Other)
  Sender: FDA-Public Use
  Company Number: PHHY2011GB113340

PATIENT
  Age: 62 Year
  Sex: Female

DRUGS (1)
  1. FLUOXETINE HCL [Suspect]

REACTIONS (3)
  - MALAISE [None]
  - FEELING JITTERY [None]
  - FEELING ABNORMAL [None]
